FAERS Safety Report 5736590-6 (Version None)
Quarter: 2008Q2

REPORT INFORMATION
  Report Type: 
  Country: None (occurrence: None)
  Receive Date: 20080513
  Receipt Date: 20080501
  Transmission Date: 20081010
  Serious: Yes (Life-Threatening, Hospitalization, Other)
  Sender: FDA-Public Use
  Company Number: CA-PFIZER INC-2008012877

PATIENT
  Age: 40 Year
  Sex: Male

DRUGS (2)
  1. VIAGRA [Suspect]
  2. CHANTIX [Suspect]

REACTIONS (4)
  - ARTERIAL OCCLUSIVE DISEASE [None]
  - COMA [None]
  - MYOCARDIAL INFARCTION [None]
  - VENTRICULAR TACHYCARDIA [None]
